FAERS Safety Report 10096598 (Version 1)
Quarter: 2014Q2

REPORT INFORMATION
  Report Type: Spontaneous
  Country: US (occurrence: US)
  Receive Date: 20140422
  Receipt Date: 20140422
  Transmission Date: 20141212
  Serious: No
  Sender: FDA-Public Use
  Company Number: US-009507513-1404USA009457

PATIENT
  Sex: Female

DRUGS (2)
  1. AFRIN [Suspect]
     Indication: PRODUCT USED FOR UNKNOWN INDICATION
     Dosage: UNK UNK, UNKNOWN
     Route: 045
     Dates: start: 2014
  2. AFRIN [Suspect]
     Dosage: UNK
     Route: 045
     Dates: start: 201404

REACTIONS (2)
  - Wrong technique in drug usage process [Unknown]
  - Drug effect decreased [Unknown]
